FAERS Safety Report 9617786 (Version 1)
Quarter: 2013Q4

REPORT INFORMATION
  Report Type: Spontaneous
  Country: TH (occurrence: None)
  Receive Date: 20131009
  Receipt Date: 20131009
  Transmission Date: 20140711
  Serious: Yes (Hospitalization)
  Sender: FDA-Public Use
  Company Number: TH-MACLEODS PHARMA-000151

PATIENT
  Age: 40 Year
  Sex: Female

DRUGS (2)
  1. LEVOFLOXACIN (LEVOFLOXACIN) [Suspect]
     Indication: MYCOBACTERIAL INFECTION
  2. CLARITHROMYCIN (CLARITHROMYCIN) [Suspect]
     Indication: MYCOBACTERIAL INFECTION

REACTIONS (1)
  - Hypersensitivity vasculitis [None]
